FAERS Safety Report 8363109-6 (Version None)
Quarter: 2012Q2

REPORT INFORMATION
  Report Type: 
  Country: None (occurrence: None)
  Receive Date: 20120514
  Receipt Date: 20120514
  Transmission Date: 20120825
  Serious: No
  Sender: FDA-Public Use
  Company Number: None

PATIENT
  Age: 40 Year
  Sex: Female
  Weight: 90.7194 kg

DRUGS (1)
  1. CYMBALTA [Suspect]
     Indication: DEPRESSION
     Dosage: 60MG 1 A DAY

REACTIONS (14)
  - ARTHRALGIA [None]
  - COGNITIVE DISORDER [None]
  - DRUG WITHDRAWAL SYNDROME [None]
  - IRRITABILITY [None]
  - JOINT STIFFNESS [None]
  - NIGHT SWEATS [None]
  - MEMORY IMPAIRMENT [None]
  - APHASIA [None]
  - BACK PAIN [None]
  - AFFECTIVE DISORDER [None]
  - MENTAL IMPAIRMENT [None]
  - PAIN IN JAW [None]
  - FEELING HOT [None]
  - ABNORMAL SENSATION IN EYE [None]
